FAERS Safety Report 9149917 (Version 1)
Quarter: 2013Q1

REPORT INFORMATION
  Report Type: Spontaneous
  Country: US (occurrence: US)
  Receive Date: 20130308
  Receipt Date: 20130308
  Transmission Date: 20140127
  Serious: No
  Sender: FDA-Public Use
  Company Number: US-ENDO PHARMACEUTICALS INC.-OPCR20121060

PATIENT
  Sex: Female

DRUGS (9)
  1. OPANA ER [Suspect]
     Indication: PAIN
     Route: 048
     Dates: start: 201205
  2. OPANA [Concomitant]
     Indication: BREAKTHROUGH PAIN
     Route: 048
     Dates: start: 2007
  3. NEXIUM [Concomitant]
     Indication: GASTROOESOPHAGEAL REFLUX DISEASE
  4. MIRALAX [Concomitant]
     Indication: CONSTIPATION
  5. LACTULOSE [Concomitant]
     Indication: CONSTIPATION
  6. VITAMINS [Concomitant]
  7. SENNA [Concomitant]
     Indication: CONSTIPATION
  8. AMITIZA [Concomitant]
     Indication: CONSTIPATION
     Route: 048
     Dates: start: 2007, end: 201205
  9. OPANA ER [Concomitant]
     Indication: PAIN
     Dates: start: 2007

REACTIONS (2)
  - Medication residue present [Not Recovered/Not Resolved]
  - Drug effect decreased [Not Recovered/Not Resolved]
